FAERS Safety Report 25578658 (Version 1)
Quarter: 2025Q3

REPORT INFORMATION
  Report Type: Spontaneous
  Country: GB (occurrence: GB)
  Receive Date: 20250718
  Receipt Date: 20250718
  Transmission Date: 20251021
  Serious: Yes (Other)
  Sender: ELI LILLY AND COMPANY
  Company Number: None

PATIENT
  Age: 51 Year
  Sex: Female

DRUGS (15)
  1. MOUNJARO [Suspect]
     Active Substance: TIRZEPATIDE
     Indication: Type 2 diabetes mellitus
     Route: 065
     Dates: start: 20241231
  2. MOUNJARO [Suspect]
     Active Substance: TIRZEPATIDE
     Route: 065
  3. MOUNJARO [Suspect]
     Active Substance: TIRZEPATIDE
     Indication: Type 2 diabetes mellitus
     Route: 065
  4. MOUNJARO [Suspect]
     Active Substance: TIRZEPATIDE
     Indication: Type 2 diabetes mellitus
     Route: 065
  5. MOUNJARO [Suspect]
     Active Substance: TIRZEPATIDE
     Indication: Type 2 diabetes mellitus
     Route: 065
  6. MOUNJARO [Suspect]
     Active Substance: TIRZEPATIDE
     Indication: Type 2 diabetes mellitus
     Route: 065
  7. AMLODIPINE [Concomitant]
     Active Substance: AMLODIPINE BESYLATE
     Indication: Hypertension
     Dates: start: 20221013
  8. ARIPIPRAZOLE [Concomitant]
     Active Substance: ARIPIPRAZOLE
     Indication: Personality disorder
     Dates: start: 20171121
  9. ATORVASTATIN [Concomitant]
     Active Substance: ATORVASTATIN
     Indication: Chronic kidney disease
     Dates: start: 20220721
  10. ATORVASTATIN [Concomitant]
     Active Substance: ATORVASTATIN
     Indication: Type 2 diabetes mellitus
  11. METFORMIN [Concomitant]
     Active Substance: METFORMIN HYDROCHLORIDE
     Indication: Type 2 diabetes mellitus
  12. MIRTAZAPINE [Concomitant]
     Active Substance: MIRTAZAPINE
     Indication: Personality disorder
  13. OMEPRAZOLE [Concomitant]
     Active Substance: OMEPRAZOLE
     Indication: Reflux gastritis
  14. PREGABALIN [Concomitant]
     Active Substance: PREGABALIN
     Indication: Personality disorder
  15. RAMIPRIL [Concomitant]
     Active Substance: RAMIPRIL
     Indication: Hypertension

REACTIONS (1)
  - Creatinine renal clearance decreased [Not Recovered/Not Resolved]

NARRATIVE: CASE EVENT DATE: 20250228
